FAERS Safety Report 9448496 (Version 1)
Quarter: 2013Q3

REPORT INFORMATION
  Report Type: Spontaneous
  Country: DE (occurrence: DE)
  Receive Date: 20130808
  Receipt Date: 20130808
  Transmission Date: 20140515
  Serious: Yes (Death, Other)
  Sender: FDA-Public Use
  Company Number: DE-TEVA-423457GER

PATIENT
  Age: 1 Day
  Sex: 0

DRUGS (1)
  1. VENLAFAXIN [Suspect]
     Route: 064

REACTIONS (1)
  - Death neonatal [Fatal]
